FAERS Safety Report 10019848 (Version 3)
Quarter: 2014Q3

REPORT INFORMATION
  Report Type: Spontaneous
  Country: US (occurrence: US)
  Receive Date: 20140318
  Receipt Date: 20140707
  Transmission Date: 20150326
  Serious: No
  Sender: FDA-Public Use
  Company Number: US-PFIZER INC-2014074550

PATIENT
  Age: 71 Year
  Sex: Female

DRUGS (1)
  1. CLINDAMYCIN PHOSPHATE. [Suspect]
     Active Substance: CLINDAMYCIN PHOSPHATE
     Dosage: UNK, 2X/DAY
     Route: 061
     Dates: start: 20131115, end: 20140328

REACTIONS (4)
  - Erythema [Unknown]
  - Skin disorder [Unknown]
  - Burning sensation [Unknown]
  - Drug ineffective [Unknown]
